FAERS Safety Report 7022017-3 (Version None)
Quarter: 2010Q3

REPORT INFORMATION
  Report Type: 
  Country: None (occurrence: None)
  Receive Date: 20100930
  Receipt Date: 20100920
  Transmission Date: 20110219
  Serious: Yes (Other)
  Sender: FDA-Public Use
  Company Number: US-US-EMD SERONO, INC.-231059J09USA

PATIENT
  Sex: Male

DRUGS (2)
  1. REBIF [Suspect]
     Indication: MULTIPLE SCLEROSIS
     Route: 058
     Dates: start: 20090707, end: 20091001
  2. INSULIN PUMP [Concomitant]
     Indication: DIABETES MELLITUS
     Route: 065

REACTIONS (2)
  - CONVULSION [None]
  - MOOD SWINGS [None]
